FAERS Safety Report 12907519 (Version 2)
Quarter: 2016Q4

REPORT INFORMATION
  Report Type: Spontaneous
  Country: SE (occurrence: SE)
  Receive Date: 20161103
  Receipt Date: 20161216
  Transmission Date: 20170207
  Serious: Yes (Other)
  Sender: FDA-Public Use
  Company Number: SE-WARNER CHILCOTT, LLC-1059196

PATIENT
  Sex: Female

DRUGS (1)
  1. OPTINATE [Suspect]
     Active Substance: RISEDRONATE SODIUM
     Route: 048

REACTIONS (1)
  - Osteonecrosis [Unknown]
